FAERS Safety Report 7980651-8 (Version None)
Quarter: 2011Q4

REPORT INFORMATION
  Report Type: 
  Country: None (occurrence: None)
  Receive Date: 20111214
  Receipt Date: 20111207
  Transmission Date: 20120403
  Serious: Yes (Other)
  Sender: FDA-Public Use
  Company Number: CHPA2011JP017878

PATIENT
  Sex: Male

DRUGS (2)
  1. NICOTINE [Suspect]
     Dosage: UNK, UNK
     Route: 062
  2. NICOTINE [Suspect]
     Indication: SMOKING CESSATION THERAPY
     Dosage: 8 MG DAILY
     Dates: start: 20100101

REACTIONS (4)
  - SCHIZOPHRENIA [None]
  - TREATMENT NONCOMPLIANCE [None]
  - OVERDOSE [None]
  - INCORRECT DRUG ADMINISTRATION DURATION [None]
